FAERS Safety Report 15131119 (Version 1)
Quarter: 2018Q3

REPORT INFORMATION
  Report Type: Spontaneous
  Country: GB (occurrence: GB)
  Receive Date: 20180711
  Receipt Date: 20180711
  Transmission Date: 20181010
  Serious: No
  Sender: FDA-Public Use
  Company Number: GB-B. BRAUN MEDICAL INC.-2051752

PATIENT
  Age: 20 Year
  Sex: Female
  Weight: 63.3 kg

DRUGS (7)
  1. CITALOPRAM [Concomitant]
     Active Substance: CITALOPRAM HYDROBROMIDE
  2. SODIUM CHLORIDE INJECTIONS USP 0264?7800?00 0264?7800?10 [Suspect]
     Active Substance: SODIUM CHLORIDE
  3. ADCAL?D3 [Concomitant]
     Active Substance: CALCIUM CARBONATE\CHOLECALCIFEROL
  4. BUDENOFALK [Concomitant]
     Active Substance: BUDESONIDE
  5. DESOGESTREL [Concomitant]
     Active Substance: DESOGESTREL
  6. VEDOLIZUMAB [Suspect]
     Active Substance: VEDOLIZUMAB
     Route: 042
     Dates: start: 20180111, end: 20180111
  7. FOLIC ACID. [Concomitant]
     Active Substance: FOLIC ACID

REACTIONS (4)
  - Skin lesion [Recovered/Resolved]
  - Rash [Recovering/Resolving]
  - Erythema [Recovered/Resolved]
  - Skin texture abnormal [Recovered/Resolved]
